FAERS Safety Report 5670637-0 (Version None)
Quarter: 2008Q1

REPORT INFORMATION
  Report Type: 
  Country: None (occurrence: None)
  Receive Date: 20080314
  Receipt Date: 20080314
  Transmission Date: 20080703
  Serious: Yes (Hospitalization)
  Sender: FDA-Public Use
  Company Number: None

PATIENT
  Sex: Male
  Weight: 82.4 kg

DRUGS (4)
  1. SUNITINIB MALATE -SU011248- 50 MG HARD GEL CAPSULE PFIZER, INC. [Suspect]
     Indication: BLADDER CANCER
     Dosage: 50 MG ONCE DAILY PO
     Route: 048
     Dates: start: 20080206, end: 20080304
  2. METOPROLOL TARTRATE [Concomitant]
  3. ACETAMINOPHEN AND HYDROCODONE BITARTRATE [Concomitant]
  4. IMODIUM A-D [Concomitant]

REACTIONS (1)
  - DEEP VEIN THROMBOSIS [None]
